FAERS Safety Report 6147262-0 (Version None)
Quarter: 2009Q2

REPORT INFORMATION
  Report Type: 
  Country: None (occurrence: None)
  Receive Date: 20090408
  Receipt Date: 20090403
  Transmission Date: 20091009
  Serious: Yes (Other)
  Sender: FDA-Public Use
  Company Number: US-ELI_LILLY_AND_COMPANY-US200904000861

PATIENT
  Sex: Male
  Weight: 126.98 kg

DRUGS (2)
  1. BYETTA [Suspect]
     Indication: TYPE 2 DIABETES MELLITUS
     Dosage: 5 UG, 2/D
     Route: 058
     Dates: start: 20090301
  2. GLIMEPIRIDE [Concomitant]
     Indication: TYPE 2 DIABETES MELLITUS
     Dosage: 4 MG, 2/D

REACTIONS (6)
  - FALL [None]
  - HEAD INJURY [None]
  - HEADACHE [None]
  - HYPOGLYCAEMIC UNCONSCIOUSNESS [None]
  - HYPOPHAGIA [None]
  - TREATMENT NONCOMPLIANCE [None]
